FAERS Safety Report 24048795 (Version 1)
Quarter: 2024Q3

REPORT INFORMATION
  Report Type: Report from Study
  Country: NL (occurrence: NL)
  Receive Date: 20240704
  Receipt Date: 20240704
  Transmission Date: 20241017
  Serious: Yes (Hospitalization)
  Sender: CELLTRION
  Company Number: NL-CELLTRION INC.-2023NL019389

PATIENT

DRUGS (2)
  1. BEVACIZUMAB [Suspect]
     Active Substance: BEVACIZUMAB
     Indication: Neoplasm
     Dosage: MOST CURRENT ADMINISTRATION DATE WAS 31/AUG/2023
     Route: 042
     Dates: start: 20230406
  2. ATEZOLIZUMAB [Suspect]
     Active Substance: ATEZOLIZUMAB
     Indication: Neoplasm
     Dosage: MOST CURRENT ADMINISTRATION DATE WAS 31/AUG/2023
     Route: 042
     Dates: start: 20230406

REACTIONS (1)
  - Disease progression [Unknown]
